FAERS Safety Report 19327089 (Version 1)
Quarter: 2021Q2

REPORT INFORMATION
  Report Type: Spontaneous
  Country: CZ (occurrence: CZ)
  Receive Date: 20210528
  Receipt Date: 20210528
  Transmission Date: 20210717
  Serious: Yes (Death, Life-Threatening, Hospitalization)
  Sender: FDA-Public Use
  Company Number: CZ-TAKEDA-2021TUS033275

PATIENT
  Age: 50 Year
  Sex: Male
  Weight: 84 kg

DRUGS (47)
  1. BROMAZEPAMUM [Concomitant]
     Indication: PROPHYLAXIS
     Dosage: 3 MILLIGRAM
     Route: 048
     Dates: start: 20141024
  2. KALLI CHLORDIUM [Concomitant]
     Indication: PRODUCT USED FOR UNKNOWN INDICATION
  3. METOCLOPRAMIDE. [Concomitant]
     Active Substance: METOCLOPRAMIDE
     Indication: PROPHYLAXIS OF NAUSEA AND VOMITING
     Dosage: UNK
     Route: 065
     Dates: start: 20130701, end: 20131015
  4. OXYCODONE [Concomitant]
     Active Substance: OXYCODONE
     Indication: BACK PAIN
     Dosage: UNK
     Route: 065
     Dates: start: 20110718, end: 20130901
  5. KALLI CHLORDIUM [Concomitant]
     Indication: PROPHYLAXIS
     Dosage: UNK
     Route: 065
     Dates: start: 20130805, end: 20130901
  6. FILGRASTIMUM [Concomitant]
     Dosage: UNK
     Route: 058
     Dates: start: 20140916
  7. CEFUROXIMUM [Concomitant]
     Dosage: UNK
     Route: 065
     Dates: start: 20140930, end: 20141005
  8. COTRIMOXAZOL [Concomitant]
     Active Substance: SULFAMETHOXAZOLE\TRIMETHOPRIM
     Indication: INFECTION PROPHYLAXIS
     Dosage: UNK, QD
     Route: 048
     Dates: start: 20130618
  9. CALTRATE [Concomitant]
     Active Substance: CALCIUM CARBONATE
     Indication: PROPHYLAXIS
     Dosage: UNK
     Route: 065
     Dates: start: 20101115, end: 20141118
  10. ACICLOVIRUM [Concomitant]
     Indication: PROPHYLAXIS
     Dosage: 400 MILLIGRAM, QD
     Route: 048
     Dates: start: 20130618
  11. LACTULOSUM [Concomitant]
     Indication: CONSTIPATION PROPHYLAXIS
     Dosage: UNK
     Route: 065
     Dates: start: 20130708, end: 20130916
  12. NADROPARINUM CALCICUM [Concomitant]
     Active Substance: NADROPARIN CALCIUM
     Dosage: 0.3 MILLILITER
     Route: 058
     Dates: start: 20150107, end: 20150107
  13. DEXAMETHASONE. [Suspect]
     Active Substance: DEXAMETHASONE
     Dosage: 40 MILLIGRAM
     Route: 048
     Dates: start: 20141216
  14. CLODRONATE DISODIUM [Concomitant]
     Active Substance: CLODRONATE DISODIUM
     Dosage: 200 MILLIGRAM, QD
     Route: 048
     Dates: start: 20150108
  15. GRANISETRONUM [Concomitant]
     Indication: PROPHYLAXIS
     Dosage: 2 MILLIGRAM
     Route: 048
     Dates: start: 20130902
  16. NINLARO [Suspect]
     Active Substance: IXAZOMIB CITRATE
     Indication: PLASMA CELL MYELOMA
     Dosage: 4 MILLIGRAM
     Route: 048
     Dates: start: 20130618
  17. CEFUROXIMUM [Concomitant]
     Indication: URINARY TRACT INFECTION
     Dosage: UNK
     Route: 065
     Dates: start: 20131210, end: 20131214
  18. CEFUROXIMUM [Concomitant]
     Dosage: UNK
     Route: 065
     Dates: start: 20140325, end: 20140403
  19. CLODRONATE DISODIUM [Concomitant]
     Active Substance: CLODRONATE DISODIUM
     Indication: PRODUCT USED FOR UNKNOWN INDICATION
     Dosage: UNK
     Route: 065
     Dates: start: 20101210
  20. PAMYCON [Concomitant]
     Indication: URINARY TRACT INFECTION
     Dosage: UNK
     Route: 065
     Dates: start: 20131230, end: 20140106
  21. FENTANYLUM [FENTANYL] [Concomitant]
     Dosage: UNK
     Route: 065
     Dates: start: 20140915
  22. DIOSMECTITE [Concomitant]
     Active Substance: MONTMORILLONITE
     Indication: GASTROENTERITIS
     Dosage: UNK
     Route: 065
     Dates: start: 20140708, end: 20140711
  23. NADROPARIN [Concomitant]
     Active Substance: NADROPARIN
     Indication: PROPHYLAXIS
     Dosage: UNK
     Route: 065
     Dates: start: 20130618, end: 20131219
  24. ZOLPIDEMI TARTRAS [Concomitant]
     Indication: INSOMNIA
     Dosage: 10 MILLIGRAM
     Route: 048
     Dates: start: 20130618
  25. REVLIMID [Suspect]
     Active Substance: LENALIDOMIDE
     Indication: PLASMA CELL MYELOMA
     Dosage: 25 MILLIGRAM
     Route: 048
     Dates: start: 20130618
  26. CHLOROXINE [Concomitant]
     Active Substance: CHLOROXINE
     Indication: DIARRHOEA
     Dosage: UNK
     Route: 065
     Dates: start: 20140708, end: 20140711
  27. NIMESULIDUM [Concomitant]
     Indication: BACK PAIN
     Dosage: 100 MILLIGRAM
     Route: 065
     Dates: start: 2010
  28. OMEPRAZOLUM [Concomitant]
     Dosage: 40 MILLIGRAM, QD
     Route: 048
     Dates: start: 20150107, end: 20150107
  29. FENTANYLUM [FENTANYL] [Concomitant]
     Indication: BACK PAIN
     Dosage: UNK
     Route: 065
     Dates: start: 20140212, end: 20140303
  30. NADROPARIN [Concomitant]
     Active Substance: NADROPARIN
     Dosage: UNK
     Route: 065
     Dates: start: 20131210, end: 20141023
  31. PARACETAMOLUM [Concomitant]
     Active Substance: ACETAMINOPHEN
     Indication: BACK PAIN
     Dosage: 1000 MILLIGRAM
     Route: 048
     Dates: start: 20131016
  32. DEXAMETHASONE. [Suspect]
     Active Substance: DEXAMETHASONE
     Indication: PLASMA CELL MYELOMA
     Dosage: 40 MILLIGRAM
     Route: 048
     Dates: start: 20130618
  33. CHLOROXINE [Concomitant]
     Active Substance: CHLOROXINE
     Dosage: UNK
     Route: 065
     Dates: start: 20140121, end: 20140123
  34. OXYCODONE [Concomitant]
     Active Substance: OXYCODONE
     Dosage: UNK
     Route: 065
     Dates: start: 20130902, end: 20131015
  35. OMEPRAZOLUM [Concomitant]
     Indication: PROPHYLAXIS
     Dosage: 20 MILLIGRAM, QD
     Route: 048
     Dates: start: 20130903
  36. FENTANYLUM [FENTANYL] [Concomitant]
     Dosage: UNK
     Route: 065
     Dates: start: 20140304
  37. DINATRIL CYTRIDINI TRIPHOSPHATIS [Concomitant]
     Indication: PROPHYLAXIS
     Dosage: 1600 MILLIGRAM, QD
     Route: 048
     Dates: start: 20101210
  38. AUGMENTIN [Concomitant]
     Active Substance: AMOXICILLIN\CLAVULANATE POTASSIUM
     Indication: INFECTION
     Dosage: UNK
     Route: 065
     Dates: start: 20131112, end: 20131122
  39. GLYCERIN [GLYCEROL] [Concomitant]
     Active Substance: GLYCERIN
     Indication: CONSTIPATION PROPHYLAXIS
     Dosage: UNK
     Route: 065
     Dates: start: 20130708, end: 20130916
  40. NADROPARINUM CALCICUM [Concomitant]
     Active Substance: NADROPARIN CALCIUM
     Dosage: 0.6 MILLILITER
     Route: 058
     Dates: start: 20150107, end: 20150107
  41. NADROPARINUM CALCICUM [Concomitant]
     Active Substance: NADROPARIN CALCIUM
     Dosage: 0.8 MILLILITER
     Route: 058
     Dates: start: 20150108, end: 20150108
  42. NINLARO [Suspect]
     Active Substance: IXAZOMIB CITRATE
     Dosage: 4 MILLIGRAM
     Route: 048
     Dates: start: 20141216
  43. REVLIMID [Suspect]
     Active Substance: LENALIDOMIDE
     Dosage: 25 MILLIGRAM
     Route: 048
     Dates: start: 20141216
  44. LACTULOSE. [Concomitant]
     Active Substance: LACTULOSE
     Indication: PRODUCT USED FOR UNKNOWN INDICATION
     Dosage: UNK
     Route: 065
     Dates: start: 20130708, end: 20130916
  45. ACICLOVIRUM [Concomitant]
     Dosage: 200 MILLIGRAM
     Route: 048
     Dates: start: 20150108
  46. BUPRENORPHIUM [Concomitant]
     Indication: PROPHYLAXIS
     Dosage: UNK
     Route: 065
     Dates: start: 20131016, end: 20140211
  47. FILGRASTIMUM [Concomitant]
     Dosage: UNK UNK, 2/WEEK
     Route: 058
     Dates: start: 20150106

REACTIONS (2)
  - Pulmonary embolism [Fatal]
  - Plasma cell myeloma [Fatal]

NARRATIVE: CASE EVENT DATE: 20150106
